FAERS Safety Report 7733097-1 (Version None)
Quarter: 2011Q3

REPORT INFORMATION
  Report Type: 
  Country: None (occurrence: None)
  Receive Date: 20110907
  Receipt Date: 20110826
  Transmission Date: 20111222
  Serious: Yes (Hospitalization)
  Sender: FDA-Public Use
  Company Number: FR-MERCK-1108USA03621

PATIENT
  Age: 46 Year
  Sex: Female

DRUGS (2)
  1. PRIMAXIN [Suspect]
     Route: 042
     Dates: start: 20101027, end: 20101028
  2. PRIMAXIN [Suspect]
     Route: 042
     Dates: start: 20101028, end: 20101029

REACTIONS (2)
  - VENTRICULAR ARRHYTHMIA [None]
  - RASH [None]
